FAERS Safety Report 20813146 (Version 2)
Quarter: 2022Q2

REPORT INFORMATION
  Report Type: Spontaneous
  Country: AT (occurrence: AT)
  Receive Date: 20220511
  Receipt Date: 20220524
  Transmission Date: 20220721
  Serious: Yes (Other)
  Sender: FDA-Public Use
  Company Number: AT-002147023-NVSC2022AT096340

PATIENT
  Sex: Male

DRUGS (1)
  1. AZACITIDINE [Suspect]
     Active Substance: AZACITIDINE
     Indication: Chronic myelomonocytic leukaemia
     Dosage: UNK
     Route: 065
     Dates: start: 202102, end: 202204

REACTIONS (8)
  - Splenomegaly [Unknown]
  - Adverse event [Unknown]
  - Asthenia [Unknown]
  - Monocytosis [Unknown]
  - Pancytopenia [Unknown]
  - Marrow hyperplasia [Unknown]
  - Myelofibrosis [Unknown]
  - Thrombocytopenia [Unknown]

NARRATIVE: CASE EVENT DATE: 20210701
